FAERS Safety Report 8078132-9 (Version None)
Quarter: 2012Q1

REPORT INFORMATION
  Report Type: 
  Country: None (occurrence: None)
  Receive Date: 20120127
  Receipt Date: 20110117
  Transmission Date: 20120608
  Serious: No
  Sender: FDA-Public Use
  Company Number: US-ABBOTT-10P-163-0685914-00

PATIENT
  Age: 61 Year
  Sex: Male

DRUGS (6)
  1. METHOTREXATE [Concomitant]
     Indication: PRODUCT USED FOR UNKNOWN INDICATION
  2. LISINOPRIL [Concomitant]
     Indication: PRODUCT USED FOR UNKNOWN INDICATION
  3. HUMIRA [Suspect]
     Indication: PSORIATIC ARTHROPATHY
     Dates: start: 20100201
  4. ALLOPURINOL [Concomitant]
     Indication: NEPHROLITHIASIS
  5. FOLIC ACID [Concomitant]
     Indication: PRODUCT USED FOR UNKNOWN INDICATION
     Dosage: WITH METHOTREXATE
  6. FELDENE [Concomitant]
     Indication: ARTHRITIS

REACTIONS (5)
  - DYSGEUSIA [None]
  - INJECTION SITE HAEMORRHAGE [None]
  - DRUG INEFFECTIVE [None]
  - EAR DISCOMFORT [None]
  - PSORIASIS [None]
